FAERS Safety Report 15704278 (Version 1)
Quarter: 2018Q4

REPORT INFORMATION
  Report Type: Spontaneous
  Country: US (occurrence: US)
  Receive Date: 20181210
  Receipt Date: 20181210
  Transmission Date: 20190205
  Serious: Yes (Disabling)
  Sender: FDA-Public Use
  Company Number: None

PATIENT
  Age: 43 Year
  Sex: Male
  Weight: 67.5 kg

DRUGS (3)
  1. BACLOFEN. [Concomitant]
     Active Substance: BACLOFEN
  2. GILENYA [Suspect]
     Active Substance: FINGOLIMOD HYDROCHLORIDE
     Route: 048
     Dates: start: 20130101, end: 20170102
  3. LYRICA [Concomitant]
     Active Substance: PREGABALIN

REACTIONS (3)
  - Multiple sclerosis relapse [None]
  - Multiple sclerosis [None]
  - Drug ineffective [None]

NARRATIVE: CASE EVENT DATE: 20170818
